FAERS Safety Report 5708204-2 (Version None)
Quarter: 2008Q2

REPORT INFORMATION
  Report Type: 
  Country: None (occurrence: None)
  Receive Date: 20080417
  Receipt Date: 20080407
  Transmission Date: 20081010
  Serious: Yes (Other)
  Sender: FDA-Public Use
  Company Number: US-JNJFOC-20080403417

PATIENT
  Sex: Female
  Weight: 58.97 kg

DRUGS (4)
  1. IBUPROFEN [Suspect]
  2. IBUPROFEN [Suspect]
     Indication: FIBROMYALGIA
  3. PREMARIN [Concomitant]
  4. ATENOLOL [Concomitant]

REACTIONS (1)
  - BLOOD POTASSIUM INCREASED [None]
